FAERS Safety Report 21394703 (Version 2)
Quarter: 2022Q4

REPORT INFORMATION
  Report Type: Report from Study
  Country: DO (occurrence: DO)
  Receive Date: 20220930
  Receipt Date: 20221209
  Transmission Date: 20230113
  Serious: Yes (Other)
  Sender: FDA-Public Use
  Company Number: DO-NOVARTISPH-NVSC2022DO219989

PATIENT
  Age: 75 Year
  Sex: Female

DRUGS (2)
  1. SECUKINUMAB [Suspect]
     Active Substance: SECUKINUMAB
     Indication: Psoriasis
     Dosage: 300 MG, QMO (CUTANEOUS/ON THE SKIN)
     Route: 003
     Dates: start: 20220216
  2. SECUKINUMAB [Suspect]
     Active Substance: SECUKINUMAB
     Dosage: 300 MG, QMO (CUTANEOUS/ON THE SKIN)
     Route: 003
     Dates: start: 20220817

REACTIONS (5)
  - Breast injury [Unknown]
  - Fall [Recovering/Resolving]
  - Head injury [Unknown]
  - Limb injury [Unknown]
  - Incorrect route of product administration [Unknown]

NARRATIVE: CASE EVENT DATE: 20220910
